FAERS Safety Report 10909557 (Version 1)
Quarter: 2015Q1

REPORT INFORMATION
  Report Type: Spontaneous
  Country: US (occurrence: US)
  Receive Date: 20150312
  Receipt Date: 20150312
  Transmission Date: 20150721
  Serious: No
  Sender: FDA-Public Use
  Company Number: US-SA-2014SA065995

PATIENT
  Age: 71 Year
  Sex: Female

DRUGS (2)
  1. NASACORT ALLERGY 24HR [Suspect]
     Active Substance: TRIAMCINOLONE ACETONIDE
     Indication: NASAL CONGESTION
     Dosage: DOSE: 1SPRAY/NOSTRIL DAILY?STARTED ABOUT 6 WEEKS?ENDED ABOUT ONE MONTH
     Route: 065
     Dates: start: 2014, end: 2014
  2. COZAAR [Concomitant]
     Active Substance: LOSARTAN POTASSIUM
     Indication: BLOOD PRESSURE

REACTIONS (1)
  - Blood pressure increased [Recovered/Resolved]
